FAERS Safety Report 12302000 (Version 1)
Quarter: 2016Q2

REPORT INFORMATION
  Report Type: Spontaneous
  Country: RU (occurrence: RU)
  Receive Date: 20160425
  Receipt Date: 20160425
  Transmission Date: 20160815
  Serious: Yes (Other)
  Sender: FDA-Public Use
  Company Number: RU-VIIV HEALTHCARE LIMITED-RU2016GSK056309

PATIENT
  Sex: Female
  Weight: 54 kg

DRUGS (3)
  1. TENOFOVIR DISOPROXIL FUMARATE. [Suspect]
     Active Substance: TENOFOVIR DISOPROXIL FUMARATE
     Indication: HIV INFECTION
     Dosage: UNK
     Dates: start: 201602
  2. LAMIVUDINE. [Suspect]
     Active Substance: LAMIVUDINE
     Indication: HIV INFECTION
     Dosage: UNK
     Dates: start: 201602
  3. REGAST [Suspect]
     Active Substance: EFAVIRENZ
     Indication: HIV INFECTION
     Dosage: UNK
     Dates: start: 201602

REACTIONS (12)
  - Discomfort [Unknown]
  - Autonomic nervous system imbalance [Not Recovered/Not Resolved]
  - Toothache [Recovered/Resolved]
  - Burning sensation [Unknown]
  - Arthralgia [Not Recovered/Not Resolved]
  - Depressed level of consciousness [Unknown]
  - Musculoskeletal stiffness [Unknown]
  - Musculoskeletal chest pain [Unknown]
  - Ocular hyperaemia [Unknown]
  - Nausea [Unknown]
  - Spinal cord disorder [Not Recovered/Not Resolved]
  - Hypoaesthesia [Unknown]

NARRATIVE: CASE EVENT DATE: 2016
